FAERS Safety Report 9684768 (Version 1)
Quarter: 2013Q4

REPORT INFORMATION
  Report Type: Spontaneous
  Country: US (occurrence: US)
  Receive Date: 20131112
  Receipt Date: 20131112
  Transmission Date: 20140711
  Serious: No
  Sender: FDA-Public Use
  Company Number: US-TEVA-443617USA

PATIENT
  Age: 70 Year
  Sex: Female
  Weight: 81.72 kg

DRUGS (11)
  1. NUVIGIL [Suspect]
     Indication: SOMNOLENCE
  2. NUVIGIL [Suspect]
     Indication: ATTENTION DEFICIT/HYPERACTIVITY DISORDER
  3. LEVOTHYROXINE [Concomitant]
     Indication: HYPOTHYROIDISM
  4. LISINOPRIL [Concomitant]
     Indication: HYPERTENSION
  5. LITHIUM CARBONATE [Concomitant]
     Indication: BIPOLAR DISORDER
  6. SYSTANE [Concomitant]
     Indication: DRY EYE
  7. CRESTOR [Concomitant]
     Indication: HYPERCHOLESTEROLAEMIA
  8. RITALIN [Concomitant]
     Indication: ATTENTION DEFICIT/HYPERACTIVITY DISORDER
     Dosage: 20 MILLIGRAM DAILY;
  9. CELEBREX [Concomitant]
     Indication: PAIN
  10. RISPERIDONE [Concomitant]
     Indication: BIPOLAR DISORDER
  11. NEXIUM [Concomitant]
     Indication: ABDOMINAL DISCOMFORT

REACTIONS (2)
  - Vision blurred [Not Recovered/Not Resolved]
  - Off label use [Unknown]
